FAERS Safety Report 9298199 (Version 2)
Quarter: 2013Q3

REPORT INFORMATION
  Report Type: Spontaneous
  Country: US (occurrence: None)
  Receive Date: 20121009
  Receipt Date: 20130815
  Transmission Date: 20140515
  Serious: Yes (Hospitalization, Other)
  Sender: FDA-Public Use
  Company Number: ADR-2012-01277

PATIENT
  Age: 49 Year
  Sex: Male

DRUGS (4)
  1. LIORESAL INTRATHECAL (BACLOFEN INJECTION) 2000MCG/ML [Suspect]
     Indication: MUSCLE SPASTICITY
  2. LIORESAL INTRATHECAL (BACLOFEN INJECTION) 2000MCG/ML [Suspect]
     Indication: SPINAL CORD INJURY
  3. LIORESAL INTRATHECAL (BACLOFEN INJECTION) 2000MCG/ML [Suspect]
     Indication: SPINAL CORD DISORDER
  4. MORPHINE [Concomitant]

REACTIONS (5)
  - Drug withdrawal syndrome [None]
  - Underdose [None]
  - Osteomyelitis [None]
  - Treatment noncompliance [None]
  - Muscle spasticity [None]
